FAERS Safety Report 23389266 (Version 1)
Quarter: 2024Q1

REPORT INFORMATION
  Report Type: Spontaneous
  Country: US (occurrence: US)
  Receive Date: 20240110
  Receipt Date: 20240110
  Transmission Date: 20240409
  Serious: No
  Sender: FDA-Public Use
  Company Number: US-REGENERON PHARMACEUTICALS, INC.-2022-162400

PATIENT
  Sex: Female

DRUGS (3)
  1. EYLEA [Suspect]
     Active Substance: AFLIBERCEPT
     Indication: Macular oedema
     Dosage: UNK, RIGHT EYE, EVERY 4 WEEKS THEN EVERY 6 WEEKS THEN EVERY 4-6 WEEKS
     Route: 031
     Dates: start: 2020
  2. EYLEA [Suspect]
     Active Substance: AFLIBERCEPT
     Dosage: UNK, LEFT EYE, EVERY 4 WEEKS THEN EVERY 6 WEEKS THEN EVERY 4-6 WEEKS
     Route: 031
     Dates: start: 2020, end: 20221006
  3. NP THYROID [Concomitant]
     Active Substance: LEVOTHYROXINE\LIOTHYRONINE
     Indication: Product used for unknown indication
     Dosage: UNK
     Dates: start: 20221006

REACTIONS (3)
  - Neovascularisation [Unknown]
  - Visual impairment [Unknown]
  - Eye swelling [Unknown]
